FAERS Safety Report 13460479 (Version 2)
Quarter: 2017Q2

REPORT INFORMATION
  Report Type: Spontaneous
  Country: US (occurrence: US)
  Receive Date: 20170420
  Receipt Date: 20170619
  Transmission Date: 20170830
  Serious: No
  Sender: FDA-Public Use
  Company Number: US-PFIZER INC-2017169635

PATIENT
  Age: 50 Year
  Sex: Female
  Weight: 81.65 kg

DRUGS (5)
  1. KRILL OIL [Concomitant]
     Active Substance: DIETARY SUPPLEMENT
     Indication: FIBROMYALGIA
     Dosage: 500 MG, 1X/DAY
     Route: 048
  2. VITAMIN D3 [Concomitant]
     Active Substance: CHOLECALCIFEROL
     Indication: FIBROMYALGIA
     Dosage: 1000 IU, 1X/DAY (SOFT GEL)
     Route: 048
  3. ESTRADIOL. [Concomitant]
     Active Substance: ESTRADIOL
     Indication: HYSTERECTOMY
     Dosage: 50 MG, 1X/DAY
     Route: 048
     Dates: start: 201702
  4. VITAMIN A [Concomitant]
     Active Substance: VITAMIN A
     Indication: FIBROMYALGIA
     Dosage: 8000 IU, 1X/DAY (SOFT GEL)
     Route: 048
  5. DESVENLAFAXINE SUCCINATE MONOHYDRATE [Suspect]
     Active Substance: DESVENLAFAXINE SUCCINATE
     Indication: FIBROMYALGIA
     Dosage: 50 MG, ONCE DAILY
     Route: 048
     Dates: start: 201702

REACTIONS (2)
  - Drug ineffective for unapproved indication [Unknown]
  - Cough [Not Recovered/Not Resolved]

NARRATIVE: CASE EVENT DATE: 201702
